FAERS Safety Report 7213685-1 (Version None)
Quarter: 2011Q1

REPORT INFORMATION
  Report Type: 
  Country: None (occurrence: None)
  Receive Date: 20110106
  Receipt Date: 20110103
  Transmission Date: 20110831
  Serious: Yes (Other)
  Sender: FDA-Public Use
  Company Number: BR-PFIZER INC-2011001205

PATIENT
  Age: 29 Year
  Sex: Male

DRUGS (1)
  1. VIAGRA [Suspect]
     Indication: SEXUAL DYSFUNCTION
     Dosage: ONE OR TWO TABLETS OF 50 MG MONTHLY
     Route: 048
     Dates: start: 20090701

REACTIONS (1)
  - COLOUR BLINDNESS [None]
